FAERS Safety Report 11895496 (Version 1)
Quarter: 2016Q1

REPORT INFORMATION
  Report Type: Spontaneous
  Country: US (occurrence: US)
  Receive Date: 20160107
  Receipt Date: 20160107
  Transmission Date: 20160526
  Serious: Yes (Death)
  Sender: FDA-Public Use
  Company Number: US-CELGENE-USA-2016010627

PATIENT
  Sex: Male

DRUGS (4)
  1. POMALYST [Suspect]
     Active Substance: POMALIDOMIDE
     Indication: PLASMA CELL MYELOMA
     Route: 048
     Dates: start: 20130731
  2. POMALYST [Suspect]
     Active Substance: POMALIDOMIDE
     Dosage: 4MG-2MG
     Route: 048
     Dates: start: 201402
  3. POMALYST [Suspect]
     Active Substance: POMALIDOMIDE
     Dosage: 2MG-3MG
     Route: 048
     Dates: start: 201501
  4. POMALYST [Suspect]
     Active Substance: POMALIDOMIDE
     Route: 048
     Dates: start: 201511

REACTIONS (1)
  - Death [Fatal]

NARRATIVE: CASE EVENT DATE: 2015
